FAERS Safety Report 23780951 (Version 3)
Quarter: 2024Q3

REPORT INFORMATION
  Report Type: Spontaneous
  Country: US (occurrence: US)
  Receive Date: 20240425
  Receipt Date: 20240711
  Transmission Date: 20241016
  Serious: Yes (Hospitalization, Other)
  Sender: UNITED THERAPEUTICS
  Company Number: US-UNITED THERAPEUTICS-UNT-2024-001231

PATIENT
  Age: 82 Year
  Sex: Female
  Weight: 96.599 kg

DRUGS (32)
  1. TYVASO DPI [Suspect]
     Active Substance: TREPROSTINIL
     Indication: Pulmonary arterial hypertension
     Dosage: 48 ?G, QID
     Dates: start: 2023
  2. TYVASO DPI [Suspect]
     Active Substance: TREPROSTINIL
     Dosage: 64 ?G, QID
     Dates: start: 2023
  3. TYVASO DPI [Suspect]
     Active Substance: TREPROSTINIL
     Dosage: UNK
     Dates: start: 20230108, end: 20240110
  4. TYVASO DPI [Suspect]
     Active Substance: TREPROSTINIL
     Indication: Pulmonary arterial hypertension
     Dosage: UNK
  5. OFEV [Suspect]
     Active Substance: NINTEDANIB
     Indication: Idiopathic pulmonary fibrosis
     Dosage: 200 MG, QD
     Dates: start: 20210303
  6. OFEV [Suspect]
     Active Substance: NINTEDANIB
     Indication: Pulmonary hypertension
     Dosage: 100 MG, Q12H
     Dates: start: 20210614
  7. OFEV [Suspect]
     Active Substance: NINTEDANIB
     Dosage: UNK
  8. OFEV [Suspect]
     Active Substance: NINTEDANIB
     Dosage: UNK
  9. OFEV [Suspect]
     Active Substance: NINTEDANIB
     Dosage: UNK
  10. OFEV [Suspect]
     Active Substance: NINTEDANIB
     Dosage: 150 MG, Q12H
     Dates: end: 20240110
  11. OFEV [Suspect]
     Active Substance: NINTEDANIB
     Dosage: UNK
  12. OFEV [Suspect]
     Active Substance: NINTEDANIB
     Dosage: UNK
  13. OFEV [Suspect]
     Active Substance: NINTEDANIB
     Dosage: UNK
  14. OFEV [Suspect]
     Active Substance: NINTEDANIB
     Dosage: UNK
  15. OFEV [Suspect]
     Active Substance: NINTEDANIB
     Dosage: UNK
  16. OFEV [Suspect]
     Active Substance: NINTEDANIB
     Dosage: UNK
  17. OFEV [Suspect]
     Active Substance: NINTEDANIB
     Dosage: UNK
  18. OFEV [Suspect]
     Active Substance: NINTEDANIB
     Dosage: UNK
  19. OFEV [Suspect]
     Active Substance: NINTEDANIB
     Dosage: UNK
  20. OFEV [Suspect]
     Active Substance: NINTEDANIB
     Dosage: UNK
  21. OFEV [Suspect]
     Active Substance: NINTEDANIB
     Dosage: UNK
  22. HYDROCHLOROTHIAZIDE [Concomitant]
     Active Substance: HYDROCHLOROTHIAZIDE
     Indication: Product used for unknown indication
     Dosage: UNK
  23. LASIX [Concomitant]
     Active Substance: FUROSEMIDE
     Indication: Product used for unknown indication
     Dosage: UNK
  24. PFIZER-BIONTECH COVID-19 VACCINE [Concomitant]
     Active Substance: TOZINAMERAN
     Indication: COVID-19 immunisation
     Dosage: UNK
  25. ATORVASTATIN CALCIUM [Concomitant]
     Active Substance: ATORVASTATIN CALCIUM
     Indication: Product used for unknown indication
     Dosage: UNK
  26. CALCIUM\CHOLECALCIFEROL [Concomitant]
     Active Substance: CALCIUM\CHOLECALCIFEROL
     Indication: Product used for unknown indication
     Dosage: UNK
  27. LOSARTAN POTASSIUM [Concomitant]
     Active Substance: LOSARTAN POTASSIUM
     Indication: Product used for unknown indication
     Dosage: UNK
  28. NAC [Concomitant]
     Indication: Product used for unknown indication
     Dosage: UNK
  29. POTASSIUM CHLORIDE [Concomitant]
     Active Substance: POTASSIUM CHLORIDE
     Indication: Product used for unknown indication
     Dosage: UNK
  30. OXYGEN [Concomitant]
     Active Substance: OXYGEN
     Indication: Product used for unknown indication
     Dosage: UNK
  31. OMEPRAZOLE AND SODIUM BICARBONATE [Concomitant]
     Active Substance: OMEPRAZOLE\SODIUM BICARBONATE
     Indication: Product used for unknown indication
     Dosage: UNK
  32. OPSUMIT [Concomitant]
     Active Substance: MACITENTAN
     Indication: Product used for unknown indication
     Dosage: UNK

REACTIONS (12)
  - Pericardial effusion [Unknown]
  - Oxygen saturation decreased [Unknown]
  - Pleural effusion [Unknown]
  - Peripheral swelling [Unknown]
  - Localised infection [Unknown]
  - Dyspnoea [Unknown]
  - Nausea [Unknown]
  - Vomiting [Unknown]
  - Illness [Unknown]
  - Headache [Recovered/Resolved]
  - Oedema peripheral [Not Recovered/Not Resolved]
  - Product administration error [Recovered/Resolved]

NARRATIVE: CASE EVENT DATE: 20230301
